FAERS Safety Report 9988598 (Version 3)
Quarter: 2025Q3

REPORT INFORMATION
  Report Type: Report from Study
  Country: CA (occurrence: CA)
  Receive Date: 20140310
  Receipt Date: 20250728
  Transmission Date: 20251021
  Serious: Yes (Other)
  Sender: ROCHE
  Company Number: CA-ROCHE-1361495

PATIENT
  Age: 36 Year
  Sex: Female
  Weight: 71 kg

DRUGS (11)
  1. XOLAIR [Suspect]
     Active Substance: OMALIZUMAB
     Indication: Asthma
     Dosage: 375 MG, BIW
     Route: 058
     Dates: start: 20101216
  2. XOLAIR [Suspect]
     Active Substance: OMALIZUMAB
     Route: 058
     Dates: start: 20140203
  3. XOLAIR [Suspect]
     Active Substance: OMALIZUMAB
     Route: 058
     Dates: start: 20140303
  4. XOLAIR [Suspect]
     Active Substance: OMALIZUMAB
     Dosage: 375 MG, Q2W
     Route: 058
     Dates: start: 20150130
  5. XOLAIR [Suspect]
     Active Substance: OMALIZUMAB
     Route: 058
     Dates: start: 20161230
  6. XOLAIR [Suspect]
     Active Substance: OMALIZUMAB
     Route: 058
     Dates: start: 20170125
  7. XOLAIR [Suspect]
     Active Substance: OMALIZUMAB
     Route: 058
     Dates: start: 20170628
  8. XOLAIR [Suspect]
     Active Substance: OMALIZUMAB
     Dosage: 375 MG, BIW
     Route: 065
  9. XOLAIR [Suspect]
     Active Substance: OMALIZUMAB
     Route: 065
     Dates: start: 20240424
  10. XOLAIR [Suspect]
     Active Substance: OMALIZUMAB
     Dosage: 375 MG (2 WEEKS)
     Route: 058
  11. SYMBICORT [Concomitant]
     Active Substance: BUDESONIDE\FORMOTEROL FUMARATE DIHYDRATE
     Route: 065

REACTIONS (7)
  - Weight decreased [Unknown]
  - Stress [Unknown]
  - Weight increased [Unknown]
  - Dysphonia [Unknown]
  - Influenza [Unknown]
  - Acne [Unknown]
  - Wrong technique in product usage process [Unknown]

NARRATIVE: CASE EVENT DATE: 20140101
